FAERS Safety Report 7287694-0 (Version None)
Quarter: 2011Q1

REPORT INFORMATION
  Report Type: 
  Country: None (occurrence: None)
  Receive Date: 20110208
  Receipt Date: 20110208
  Transmission Date: 20110831
  Serious: Yes (Other)
  Sender: FDA-Public Use
  Company Number: None

PATIENT
  Age: 52 Year
  Sex: Male
  Weight: 77.1115 kg

DRUGS (2)
  1. PREDNISONE [Concomitant]
  2. HUMIRA [Suspect]
     Indication: CROHN'S DISEASE
     Dosage: 40 MG WEEKLY IM
     Route: 030
     Dates: start: 20090423, end: 20100819

REACTIONS (16)
  - OEDEMA PERIPHERAL [None]
  - JOINT SWELLING [None]
  - GENERAL PHYSICAL HEALTH DETERIORATION [None]
  - OSTEOARTHRITIS [None]
  - TENDONITIS [None]
  - IMMUNE SYSTEM DISORDER [None]
  - CARPAL TUNNEL SYNDROME [None]
  - ROTATOR CUFF SYNDROME [None]
  - INFLAMMATION [None]
  - UNEVALUABLE EVENT [None]
  - MYALGIA [None]
  - ARTHRITIS [None]
  - PERICARDITIS [None]
  - CONDITION AGGRAVATED [None]
  - RHEUMATOID ARTHRITIS [None]
  - BONE PAIN [None]
